FAERS Safety Report 8568195-6 (Version None)
Quarter: 2012Q3

REPORT INFORMATION
  Report Type: 
  Country: None (occurrence: None)
  Receive Date: 20120803
  Receipt Date: 20120716
  Transmission Date: 20120928
  Serious: No
  Sender: FDA-Public Use
  Company Number: US-ABBOTT-12P-163-0956373-00

PATIENT
  Sex: Male
  Weight: 122.58 kg

DRUGS (2)
  1. NIASPAN [Suspect]
     Indication: BLOOD GLUCOSE INCREASED
     Dosage: 1 AT BEDTIME
     Route: 048
     Dates: start: 20120101
  2. TRIBENZOR [Concomitant]
     Indication: PRODUCT USED FOR UNKNOWN INDICATION
     Route: 048

REACTIONS (3)
  - MIDDLE INSOMNIA [None]
  - FEELING HOT [None]
  - FLUSHING [None]
